FAERS Safety Report 13652255 (Version 4)
Quarter: 2017Q3

REPORT INFORMATION
  Report Type: Report from Study
  Country: US (occurrence: US)
  Receive Date: 20170614
  Receipt Date: 20170830
  Transmission Date: 20171127
  Serious: Yes (Other)
  Sender: FDA-Public Use
  Company Number: US-009507513-1706USA005066

PATIENT
  Age: 68 Year
  Sex: Male

DRUGS (4)
  1. EMEND [Suspect]
     Active Substance: APREPITANT
     Indication: NAUSEA
     Dosage: 150 MG, ONLY HAD TWO DOSES ON 13-APR-2017AND11-MAY-2017
     Route: 042
     Dates: start: 20170413, end: 20170511
  2. ALIMTA [Concomitant]
     Active Substance: PEMETREXED DISODIUM
  3. EMEND [Suspect]
     Active Substance: APREPITANT
     Indication: VOMITING
  4. CARBOPLATIN. [Concomitant]
     Active Substance: CARBOPLATIN

REACTIONS (1)
  - Malignant neoplasm progression [Unknown]

NARRATIVE: CASE EVENT DATE: 20170607
